FAERS Safety Report 12957225 (Version 3)
Quarter: 2016Q4

REPORT INFORMATION
  Report Type: Spontaneous
  Country: FR (occurrence: FR)
  Receive Date: 20161118
  Receipt Date: 20161228
  Transmission Date: 20170207
  Serious: Yes (Hospitalization)
  Sender: FDA-Public Use
  Company Number: FR-PFIZER INC-2016533662

PATIENT
  Age: 25 Year
  Sex: Male

DRUGS (14)
  1. CLONAZEPAM. [Concomitant]
     Active Substance: CLONAZEPAM
     Indication: SLEEP DISORDER
  2. THIOPENTAL [Concomitant]
     Active Substance: THIOPENTAL
     Indication: SEIZURE
     Dosage: UNK
  3. PROPOFOL. [Concomitant]
     Active Substance: PROPOFOL
     Indication: EPILEPSY
     Dosage: UNK
  4. LEVETIRACETAM. [Suspect]
     Active Substance: LEVETIRACETAM
     Indication: EPILEPSY
     Dosage: 500 MG, 2X/DAY
  5. CLOBAZAM [Concomitant]
     Active Substance: CLOBAZAM
     Indication: EPILEPSY
     Dosage: 5 MG THRICE DAILY ON DAY 1
  6. CLONAZEPAM. [Concomitant]
     Active Substance: CLONAZEPAM
     Indication: GENERALISED TONIC-CLONIC SEIZURE
     Dosage: CLONAZEPAM 1 MG TWICE
  7. FOSPHENYTOIN [Concomitant]
     Active Substance: FOSPHENYTOIN\FOSPHENYTOIN SODIUM
     Indication: GENERALISED TONIC-CLONIC SEIZURE
     Dosage: 1.5 G, UNK
  8. ENOXAPARIN [Concomitant]
     Active Substance: ENOXAPARIN
     Indication: EPILEPSY
     Dosage: UNK
  9. SUFENTANIL [Concomitant]
     Active Substance: SUFENTANIL
     Indication: SEDATION
     Dosage: UNK
     Route: 041
  10. CLOBAZAM [Concomitant]
     Active Substance: CLOBAZAM
     Dosage: 5 MG TWICE DAILY ON DAY 4
  11. FOSPHENYTOIN [Concomitant]
     Active Substance: FOSPHENYTOIN\FOSPHENYTOIN SODIUM
     Indication: SLEEP DISORDER
  12. ESOMEPRAZOL [Concomitant]
     Active Substance: ESOMEPRAZOLE
     Dosage: 40 MG, (STOPPED ON DAY 4)
  13. THIOPENTAL [Concomitant]
     Active Substance: THIOPENTAL
     Indication: SEDATION
  14. SUXAMETHONIUM [Concomitant]
     Active Substance: SUCCINYLCHOLINE
     Indication: ENDOTRACHEAL INTUBATION
     Dosage: UNK

REACTIONS (1)
  - Blood creatine phosphokinase increased [Recovering/Resolving]
